FAERS Safety Report 17438233 (Version 1)
Quarter: 2020Q1

REPORT INFORMATION
  Report Type: Spontaneous
  Country: GB (occurrence: GB)
  Receive Date: 20200220
  Receipt Date: 20200220
  Transmission Date: 20200409
  Serious: Yes (Other)
  Sender: FDA-Public Use
  Company Number: GB-AUROBINDO-AUR-APL-2020-007657

PATIENT
  Age: 40 Year
  Sex: Male
  Weight: 80.28 kg

DRUGS (1)
  1. PAROXETINE. [Suspect]
     Active Substance: PAROXETINE
     Indication: MAJOR DEPRESSION
     Dosage: 20 MILLIGRAM
     Route: 048
     Dates: start: 20200107

REACTIONS (8)
  - Somnolence [Not Recovered/Not Resolved]
  - Dry mouth [Recovered/Resolved]
  - Eye haemorrhage [Recovered/Resolved]
  - Blunted affect [Recovering/Resolving]
  - Decreased appetite [Recovering/Resolving]
  - Urine output decreased [Not Recovered/Not Resolved]
  - Yawning [Recovering/Resolving]
  - Ejaculation delayed [Not Recovered/Not Resolved]

NARRATIVE: CASE EVENT DATE: 20200107
